FAERS Safety Report 11128450 (Version 1)
Quarter: 2015Q2

REPORT INFORMATION
  Report Type: Spontaneous
  Country: US (occurrence: None)
  Receive Date: 20150520
  Receipt Date: 20150520
  Transmission Date: 20150821
  Serious: Yes (Hospitalization)
  Sender: FDA-Public Use
  Company Number: None

PATIENT
  Age: 80 Year
  Sex: Female
  Weight: 64 kg

DRUGS (1)
  1. FERAHEME [Suspect]
     Active Substance: FERUMOXYTOL NON-STOICHIOMETRIC MAGNETITE
     Indication: ANAEMIA
     Dosage: 510 MG/50 ML NSS, TWICE IN SEVEN DAY
     Route: 042
     Dates: start: 20150515, end: 20150515

REACTIONS (7)
  - Back pain [None]
  - Musculoskeletal pain [None]
  - Blood pressure decreased [None]
  - Feeling hot [None]
  - Infusion related reaction [None]
  - Respiratory rate increased [None]
  - Cold sweat [None]

NARRATIVE: CASE EVENT DATE: 20150515
